FAERS Safety Report 21017633 (Version 1)
Quarter: 2022Q2

REPORT INFORMATION
  Report Type: Spontaneous
  Country: IN (occurrence: IN)
  Receive Date: 20220628
  Receipt Date: 20220628
  Transmission Date: 20220721
  Serious: Yes (Death)
  Sender: FDA-Public Use
  Company Number: IN-PFIZER INC-2020476704

PATIENT
  Age: 59 Year
  Sex: Male

DRUGS (8)
  1. DACOMITINIB [Suspect]
     Active Substance: DACOMITINIB
     Indication: Lung neoplasm malignant
     Dosage: 30 MG, DAILY
     Route: 048
     Dates: start: 20201202
  2. ONDANSETRON HYDROCHLORIDE [Concomitant]
     Active Substance: ONDANSETRON HYDROCHLORIDE
     Indication: Vomiting
     Dosage: 8 MG, 3X/DAY (1-1-1)
  3. ONDANSETRON HYDROCHLORIDE [Concomitant]
     Active Substance: ONDANSETRON HYDROCHLORIDE
     Indication: Nausea
  4. PAN [Concomitant]
     Indication: Gastritis
     Dosage: 40 MG, DAILY (1-0-0)
  5. ONCOLIFE PLUS [Concomitant]
     Dosage: UNK, DAILY (0-1-0)
  6. REDOTIL [Concomitant]
     Indication: Diarrhoea
     Dosage: 100 MG, DAILY (1-0-0)
  7. DUPHALAC [Concomitant]
     Active Substance: LACTULOSE
     Indication: Constipation
     Dosage: 10 ML, 3X/DAY
  8. SUPRACAL [CALCIUM] [Concomitant]
     Dosage: UNK, DAILY (0-1-0)

REACTIONS (3)
  - Death [Fatal]
  - Dermatitis [Unknown]
  - Contraindicated product administered [Unknown]
